FAERS Safety Report 23294178 (Version 1)
Quarter: 2023Q4

REPORT INFORMATION
  Report Type: Spontaneous
  Country: US (occurrence: US)
  Receive Date: 20231213
  Receipt Date: 20231213
  Transmission Date: 20240109
  Serious: No
  Sender: FDA-Public Use
  Company Number: US-PFIZER INC-202300423226

PATIENT
  Sex: Female

DRUGS (2)
  1. NURTEC ODT [Suspect]
     Active Substance: RIMEGEPANT SULFATE
     Indication: Migraine
     Dosage: 1 DF, ALTERNATE DAY
     Dates: start: 20231129
  2. NURTEC ODT [Suspect]
     Active Substance: RIMEGEPANT SULFATE
     Indication: Headache

REACTIONS (5)
  - Dizziness [Unknown]
  - Brain fog [Unknown]
  - Somnolence [Unknown]
  - Memory impairment [Unknown]
  - Balance disorder [Unknown]

NARRATIVE: CASE EVENT DATE: 20231129
